FAERS Safety Report 26028153 (Version 1)
Quarter: 2025Q4

REPORT INFORMATION
  Report Type: Spontaneous
  Country: US (occurrence: US)
  Receive Date: 20251111
  Receipt Date: 20251111
  Transmission Date: 20260117
  Serious: Yes (Hospitalization)
  Sender: NOVARTIS
  Company Number: US-002147023-NVSC2025US171002

PATIENT
  Age: 71 Year
  Sex: Female

DRUGS (1)
  1. LETROZOLE [Suspect]
     Active Substance: LETROZOLE
     Indication: Neoplasm malignant
     Dosage: 125 MG, QD (ON DAYS 1-21 EVERY 28 DAY CYCLE )
     Route: 065
     Dates: start: 20251013

REACTIONS (1)
  - Illness [Not Recovered/Not Resolved]
